FAERS Safety Report 7036121-7 (Version None)
Quarter: 2010Q4

REPORT INFORMATION
  Report Type: 
  Country: None (occurrence: None)
  Receive Date: 20101008
  Receipt Date: 20091208
  Transmission Date: 20110411
  Serious: No
  Sender: FDA-Public Use
  Company Number: US-BRISTOL-MYERS SQUIBB COMPANY-14898217

PATIENT
  Age: 77 Year
  Sex: Female

DRUGS (1)
  1. AVAPRO [Suspect]

REACTIONS (2)
  - RASH [None]
  - SWELLING FACE [None]
